FAERS Safety Report 8826855 (Version 3)
Quarter: 2013Q1

REPORT INFORMATION
  Report Type: Report from Study
  Country: FR (occurrence: FR)
  Receive Date: 20121005
  Receipt Date: 20130222
  Transmission Date: 20140127
  Serious: Yes (Hospitalization)
  Sender: FDA-Public Use
  Company Number: FR-PFIZER INC-2012239954

PATIENT
  Age: 72 Year
  Sex: Male
  Weight: 61 kg

DRUGS (10)
  1. AXITINIB [Suspect]
     Indication: HEPATIC CANCER RECURRENT
     Dosage: 5 MG, 2X/DAY
     Route: 048
     Dates: start: 20120312, end: 20120321
  2. AXITINIB [Suspect]
     Dosage: 3 MG, 2X/DAY
     Route: 048
     Dates: start: 20120322, end: 20120411
  3. AXITINIB [Suspect]
     Dosage: 2 MG, 2X/DAY
     Route: 048
     Dates: start: 20120412, end: 20120509
  4. AXITINIB [Suspect]
     Dosage: 3 MG, 2X/DAY
     Route: 048
     Dates: start: 20120510, end: 20120924
  5. AMLOR [Concomitant]
     Indication: HYPERTENSION
     Dosage: UNK
     Dates: start: 20120607, end: 20120925
  6. ADVAGRAF [Concomitant]
     Indication: LIVER TRANSPLANT
     Dosage: UNK
     Dates: start: 20070323
  7. CERTICAN [Concomitant]
     Indication: LIVER TRANSPLANT
     Dosage: UNK
     Dates: start: 20070323
  8. EUPANTOL [Concomitant]
     Indication: GASTRITIS PROPHYLAXIS
     Dosage: UNK
     Dates: start: 2007
  9. IMODIUM [Concomitant]
     Indication: DIARRHOEA
     Dosage: UNK
     Dates: start: 20120830
  10. LEVOTHYROX [Concomitant]
     Indication: HYPOTHYROIDISM
     Dosage: UNK
     Dates: start: 20120412

REACTIONS (1)
  - Ventricular tachycardia [Recovered/Resolved]
